FAERS Safety Report 10038881 (Version 1)
Quarter: 2014Q1

REPORT INFORMATION
  Report Type: Spontaneous
  Country: FR (occurrence: FR)
  Receive Date: 20140326
  Receipt Date: 20140326
  Transmission Date: 20141002
  Serious: Yes (Hospitalization)
  Sender: FDA-Public Use
  Company Number: FR-ASTRAZENECA-2014SE19295

PATIENT
  Age: 53 Year
  Sex: Female

DRUGS (6)
  1. XYLOCAINE [Suspect]
     Indication: INDUCTION OF ANAESTHESIA
     Route: 051
     Dates: start: 20130607, end: 20130607
  2. PROPOFOL [Suspect]
     Indication: INDUCTION OF ANAESTHESIA
     Route: 051
     Dates: start: 20130607, end: 20130607
  3. CLINDAMYCINE (PHOSPHATE DE) [Suspect]
     Route: 042
     Dates: start: 20130607, end: 20130607
  4. ESMERON [Suspect]
     Indication: INDUCTION OF ANAESTHESIA
     Route: 051
     Dates: start: 20130607, end: 20130607
  5. SUFENTA [Suspect]
     Indication: INDUCTION OF ANAESTHESIA
     Route: 051
     Dates: start: 20130607, end: 20130607
  6. FORTECORTIN [Suspect]
     Indication: INDUCTION OF ANAESTHESIA
     Route: 051
     Dates: start: 20130607, end: 20130607

REACTIONS (4)
  - Eyelid oedema [Recovered/Resolved]
  - Oedema peripheral [Recovered/Resolved]
  - Haemodynamic instability [Recovered/Resolved]
  - Tryptase increased [Unknown]
